FAERS Safety Report 8041864-2 (Version None)
Quarter: 2012Q1

REPORT INFORMATION
  Report Type: 
  Country: None (occurrence: None)
  Receive Date: 20120112
  Receipt Date: 20120112
  Transmission Date: 20120608
  Serious: No
  Sender: FDA-Public Use
  Company Number: None

PATIENT
  Sex: Male
  Weight: 86.636 kg

DRUGS (1)
  1. ISOVUE-300 [Suspect]
     Indication: DIAGNOSTIC PROCEDURE
     Dosage: 100ML
     Route: 040
     Dates: start: 20120109, end: 20120110

REACTIONS (2)
  - CONTRAST MEDIA REACTION [None]
  - DRUG HYPERSENSITIVITY [None]
